FAERS Safety Report 6644127-2 (Version None)
Quarter: 2010Q1

REPORT INFORMATION
  Report Type: 
  Country: None (occurrence: None)
  Receive Date: 20100317
  Receipt Date: 20090903
  Transmission Date: 20100710
  Serious: Yes (Life-Threatening)
  Sender: FDA-Public Use
  Company Number: FR-GUERBET-20100042

PATIENT
  Age: 53 Year
  Sex: Male

DRUGS (2)
  1. HEXABRIX [Suspect]
     Indication: ARTERIOGRAM CORONARY
     Dosage: INTRAVENOUS (NOT OTHERWISE SPECIFIED)
     Route: 042
     Dates: start: 20090512, end: 20090512
  2. REOPRO: / ABCIXIMAB [Suspect]
     Dosage: INTRAVENOUS
     Route: 042
     Dates: start: 20090512, end: 20090512

REACTIONS (4)
  - ANAPHYLACTIC SHOCK [None]
  - BLOOD PRESSURE SYSTOLIC DECREASED [None]
  - TACHYCARDIA [None]
  - TROPONIN INCREASED [None]
